FAERS Safety Report 22367310 (Version 1)
Quarter: 2023Q2

REPORT INFORMATION
  Report Type: Spontaneous
  Country: US (occurrence: None)
  Receive Date: 20230525
  Receipt Date: 20230525
  Transmission Date: 20230722
  Serious: Yes (Other)
  Sender: FDA-Public Use
  Company Number: 2023A116456

PATIENT
  Sex: Male

DRUGS (2)
  1. BRILINTA [Interacting]
     Active Substance: TICAGRELOR
     Indication: Product used for unknown indication
     Route: 048
  2. ENZALUTAMIDE [Interacting]
     Active Substance: ENZALUTAMIDE
     Indication: Product used for unknown indication
     Route: 048
     Dates: start: 20230310

REACTIONS (2)
  - Drug interaction [Unknown]
  - Cerebrovascular accident [Unknown]
